FAERS Safety Report 9745222 (Version 1)
Quarter: 2013Q4

REPORT INFORMATION
  Report Type: Spontaneous
  Country: US (occurrence: US)
  Receive Date: 20131211
  Receipt Date: 20131211
  Transmission Date: 20140711
  Serious: No
  Sender: FDA-Public Use
  Company Number: US-PFIZER INC-2013352946

PATIENT
  Age: 61 Year
  Sex: Female
  Weight: 108.39 kg

DRUGS (10)
  1. LYRICA [Suspect]
     Indication: FIBROMYALGIA
     Dosage: UNK
     Route: 048
  2. LASIX [Concomitant]
     Dosage: 40 MG, 1X/DAY
  3. SINGULAIR [Concomitant]
     Dosage: 10 MG, 1X/DAY
  4. CYMBALTA [Concomitant]
     Dosage: 60 MG, 2X/DAY
  5. PRILOSEC [Concomitant]
     Dosage: 20 MG, 3X/DAY
  6. BUSPAR [Concomitant]
     Dosage: ONE AND HALF TABLET OF 15MG TWO TIMES A DAY
  7. ZYRTEC [Concomitant]
     Indication: HYPERSENSITIVITY
     Dosage: 10 MG, 1X/DAY
  8. ABILIFY [Concomitant]
     Dosage: 2 MG, UNK
  9. PERCOCET [Concomitant]
     Dosage: 10/325 MG, 4X/DAY
  10. OXYBUTYNIN [Concomitant]
     Dosage: 5 MG, 2X/DAY

REACTIONS (1)
  - Drug ineffective [Unknown]
